FAERS Safety Report 23196838 (Version 3)
Quarter: 2025Q2

REPORT INFORMATION
  Report Type: Spontaneous
  Country: ZA (occurrence: ZA)
  Receive Date: 20231117
  Receipt Date: 20250422
  Transmission Date: 20250717
  Serious: Yes (Other)
  Sender: PFIZER
  Company Number: ZA-PFIZER INC-202300361266

PATIENT
  Age: 46 Year
  Sex: Female

DRUGS (8)
  1. METHOTREXATE SODIUM [Suspect]
     Active Substance: METHOTREXATE SODIUM
     Indication: Rheumatoid arthritis
     Dosage: 12.5-25 MG WEEKLY
     Dates: start: 200708
  2. CHLOROQUINE [Suspect]
     Active Substance: CHLOROQUINE
     Dates: start: 200708, end: 202108
  3. VIMOVO [Suspect]
     Active Substance: ESOMEPRAZOLE MAGNESIUM\NAPROXEN
     Dosage: 500/20 MG, DAILY
     Dates: start: 201908, end: 202106
  4. ADALIMUMAB [Concomitant]
     Active Substance: ADALIMUMAB
     Dates: start: 202107, end: 202202
  5. ACTEMRA [Concomitant]
     Active Substance: TOCILIZUMAB
     Dosage: 162 MG, WEEKLY
     Dates: start: 202203, end: 202306
  6. ORENCIA [Concomitant]
     Active Substance: ABATACEPT
     Dosage: 125 MG, WEEKLY
     Dates: start: 202307, end: 202310
  7. LEFLUNOMIDE [Concomitant]
     Active Substance: LEFLUNOMIDE
     Dosage: 20 MG, DAILY
     Dates: start: 202104, end: 202108
  8. ENBREL [Concomitant]
     Active Substance: ETANERCEPT
     Dosage: 50 MG, WEEKLY
     Dates: start: 202311

REACTIONS (4)
  - Hysterectomy [Unknown]
  - Hypertension [Unknown]
  - Depression [Unknown]
  - Hyperparathyroidism [Unknown]

NARRATIVE: CASE EVENT DATE: 20190820
